FAERS Safety Report 14951990 (Version 1)
Quarter: 2018Q2

REPORT INFORMATION
  Report Type: Report from Study
  Country: DE (occurrence: DE)
  Receive Date: 20180530
  Receipt Date: 20180530
  Transmission Date: 20180711
  Serious: Yes (Other)
  Sender: FDA-Public Use
  Company Number: DE-TEVA-2018-DE-898938

PATIENT
  Age: 23 Year
  Sex: Male

DRUGS (3)
  1. EPIRUBICIN [Suspect]
     Active Substance: EPIRUBICIN
     Indication: RHABDOMYOSARCOMA
     Route: 065
  2. PONATINIB [Suspect]
     Active Substance: PONATINIB
     Indication: RHABDOMYOSARCOMA
     Route: 048
  3. CRIZOTINIB [Suspect]
     Active Substance: CRIZOTINIB
     Indication: RHABDOMYOSARCOMA
     Route: 048

REACTIONS (4)
  - Neutropenia [Unknown]
  - Blood bilirubin increased [Unknown]
  - Aspartate aminotransferase increased [Unknown]
  - Lymphopenia [Unknown]
